FAERS Safety Report 4423351-3 (Version None)
Quarter: 2004Q3

REPORT INFORMATION
  Report Type: 
  Country: None (occurrence: None)
  Receive Date: 20040806
  Receipt Date: 20040723
  Transmission Date: 20050211
  Serious: Yes (Death)
  Sender: FDA-Public Use
  Company Number: 2004049855

PATIENT
  Age: 68 Year
  Sex: Male
  Weight: 83.9154 kg

DRUGS (6)
  1. NEOSPORIN [Suspect]
     Indication: SWELLING FACE
     Dosage: TOPICAL
     Route: 061
     Dates: start: 20020101, end: 20020101
  2. PAROXETINE HCL [Concomitant]
  3. ATORVASTATIN (ATORVASTATIN) [Concomitant]
  4. ROFECOXIB [Concomitant]
  5. FEXOFENADINE HYDROCHLORIDE [Concomitant]
  6. DRUG, UNSPECIFIED (DRUG, UNSPECIFIED) [Concomitant]

REACTIONS (3)
  - CONDITION AGGRAVATED [None]
  - DEPRESSION [None]
  - MEDICATION ERROR [None]
